FAERS Safety Report 18412637 (Version 4)
Quarter: 2021Q4

REPORT INFORMATION
  Report Type: Report from Study
  Country: US (occurrence: US)
  Receive Date: 20201021
  Receipt Date: 20211109
  Transmission Date: 20220303
  Serious: Yes (Hospitalization, Other)
  Sender: FDA-Public Use
  Company Number: PHHO2017US012357

PATIENT
  Age: 55 Year
  Sex: Female
  Weight: 73.4 kg

DRUGS (15)
  1. MAYZENT [Suspect]
     Active Substance: SIPONIMOD
     Indication: Secondary progressive multiple sclerosis
     Dosage: UNK
     Route: 048
     Dates: start: 20141211, end: 20160323
  2. SIPONIMOD [Suspect]
     Active Substance: SIPONIMOD
     Indication: Secondary progressive multiple sclerosis
     Dosage: 1 DF, (1 TAB)
     Route: 048
     Dates: start: 20160505, end: 20170820
  3. SIPONIMOD [Suspect]
     Active Substance: SIPONIMOD
     Dosage: 1 DF, (1 TAB)
     Route: 048
     Dates: start: 20170823
  4. SIPONIMOD [Suspect]
     Active Substance: SIPONIMOD
     Dosage: 1 MG, QAM
     Route: 048
     Dates: start: 20200501, end: 20201013
  5. BACLOFEN [Concomitant]
     Active Substance: BACLOFEN
     Indication: Product used for unknown indication
     Route: 065
  6. LISINOPRIL [Concomitant]
     Active Substance: LISINOPRIL
     Indication: Hypertension
     Dosage: 10 MG, QHS
     Route: 048
     Dates: start: 20170508
  7. METHYLPHENIDATE [Concomitant]
     Active Substance: METHYLPHENIDATE
     Indication: Fatigue
     Dosage: 20 MG, BID
     Route: 048
     Dates: start: 2010
  8. VITAMINS [Concomitant]
     Active Substance: VITAMINS
     Indication: General physical condition
     Dosage: UNK, QHS
     Route: 048
  9. ZYRTEC [Concomitant]
     Active Substance: CETIRIZINE HYDROCHLORIDE
     Indication: Seasonal allergy
     Dosage: 10 MG, PRN
     Route: 048
     Dates: start: 2013
  10. ACETAMINOPHEN [Concomitant]
     Active Substance: ACETAMINOPHEN
     Indication: Pain
     Dosage: 650 MG, PRN
     Route: 048
     Dates: start: 20180521
  11. CYMBALTA [Concomitant]
     Active Substance: DULOXETINE HYDROCHLORIDE
     Indication: Depression
     Dosage: 60 MG, BID
     Route: 048
     Dates: start: 20190402
  12. TIZANIDINE [Concomitant]
     Active Substance: TIZANIDINE
     Indication: Neuropathy peripheral
     Dosage: 2 MG, TID
     Route: 048
     Dates: start: 201310
  13. TOLTERODINE [Concomitant]
     Active Substance: TOLTERODINE
     Indication: Neurogenic bladder
     Dosage: 4 MG, QHS
     Route: 048
     Dates: start: 20200602
  14. FERROUS SULFATE [Concomitant]
     Active Substance: FERROUS SULFATE
     Indication: Cytopenia
     Dosage: 325 MG, QAM
     Route: 048
     Dates: start: 20201014
  15. POTASSIUM CHLORIDE [Concomitant]
     Active Substance: POTASSIUM CHLORIDE
     Indication: Hypokalaemia
     Dosage: 40 MEQ, ONCE/SINGLE
     Route: 048
     Dates: start: 20201015

REACTIONS (4)
  - Hepatitis acute [Recovered/Resolved]
  - Urinary tract infection [Recovered/Resolved]
  - Urinary tract infection [Recovered/Resolved]
  - Asthenia [Recovered/Resolved]

NARRATIVE: CASE EVENT DATE: 20170820
